FAERS Safety Report 9467502 (Version 1)
Quarter: 2013Q3

REPORT INFORMATION
  Report Type: Report from Study
  Country: JP (occurrence: JP)
  Receive Date: 20130821
  Receipt Date: 20130821
  Transmission Date: 20140515
  Serious: Yes (Other)
  Sender: FDA-Public Use
  Company Number: JP-JNJFOC-20130809786

PATIENT
  Age: 84 Year
  Sex: Female
  Weight: 35 kg

DRUGS (12)
  1. XARELTO [Suspect]
     Indication: ISCHAEMIC STROKE
     Route: 048
     Dates: start: 20120808, end: 20130226
  2. XARELTO [Suspect]
     Indication: ISCHAEMIC STROKE
     Route: 048
     Dates: start: 20130227
  3. XARELTO [Suspect]
     Indication: EMBOLISM
     Route: 048
     Dates: start: 20130227
  4. XARELTO [Suspect]
     Indication: EMBOLISM
     Route: 048
     Dates: start: 20120808, end: 20130226
  5. XARELTO [Suspect]
     Indication: THROMBOSIS PROPHYLAXIS
     Route: 048
     Dates: start: 20130227
  6. XARELTO [Suspect]
     Indication: THROMBOSIS PROPHYLAXIS
     Route: 048
     Dates: start: 20120808, end: 20130226
  7. XARELTO [Suspect]
     Indication: CEREBROVASCULAR ACCIDENT PROPHYLAXIS
     Route: 048
     Dates: start: 20120808, end: 20130226
  8. XARELTO [Suspect]
     Indication: CEREBROVASCULAR ACCIDENT PROPHYLAXIS
     Route: 048
     Dates: start: 20130227
  9. SIGMART [Concomitant]
     Route: 048
  10. GASTER D [Concomitant]
     Route: 048
  11. AVAPRO [Concomitant]
     Route: 048
  12. MAGMITT [Concomitant]
     Route: 048

REACTIONS (1)
  - Renal impairment [Recovered/Resolved]
